FAERS Safety Report 8918514 (Version 1)
Quarter: 2012Q4

REPORT INFORMATION
  Report Type: 
  Country: DE (occurrence: DE)
  Receive Date: 20121120
  Receipt Date: 20121120
  Transmission Date: 20130627
  Serious: Yes (Hospitalization, Other)
  Sender: FDA-Public Use
  Company Number: DE-ELI_LILLY_AND_COMPANY-DE201211002698

PATIENT
  Sex: Female

DRUGS (3)
  1. BYDUREON [Suspect]
     Indication: DIABETES MELLITUS
     Dosage: 2 mg, unknown
     Route: 058
     Dates: start: 20120411
  2. GLIMEPIRID [Concomitant]
  3. L-THYROXIN [Concomitant]

REACTIONS (21)
  - Chest discomfort [Recovered/Resolved]
  - Swelling face [Recovered/Resolved]
  - Gastrointestinal disorder [Not Recovered/Not Resolved]
  - Faecal volume increased [Recovered/Resolved]
  - Rectal spasm [Recovered/Resolved]
  - Gastrointestinal infection [Recovered/Resolved]
  - Eye swelling [Recovered/Resolved]
  - Pruritus [Recovered/Resolved]
  - Oedema peripheral [Recovered/Resolved]
  - Cyanosis [Recovered/Resolved]
  - Ear discomfort [Recovered/Resolved]
  - Asthenia [Not Recovered/Not Resolved]
  - Cardiovascular disorder [Unknown]
  - Abdominal pain lower [Recovered/Resolved]
  - Diarrhoea [Recovered/Resolved]
  - Nausea [Not Recovered/Not Resolved]
  - Dyspepsia [Recovered/Resolved]
  - Gastrointestinal pain [Recovered/Resolved]
  - Abdominal pain [Recovered/Resolved]
  - Vomiting [Recovered/Resolved]
  - Headache [Not Recovered/Not Resolved]
